FAERS Safety Report 10301860 (Version 1)
Quarter: 2014Q3

REPORT INFORMATION
  Report Type: Spontaneous
  Country: CA (occurrence: None)
  Receive Date: 20140709
  Receipt Date: 20140709
  Transmission Date: 20150326
  Serious: Yes (Other)
  Sender: FDA-Public Use
  Company Number: IPC201406-000331

PATIENT
  Age: 72 Year
  Sex: Female
  Weight: 70 kg

DRUGS (15)
  1. AMLODIPINE BESILATE (AMLODIPINE BESILATE) (AMLODIPINE BESILATE) [Suspect]
     Active Substance: AMLODIPINE BESYLATE
  2. PYRIDOXINE [Suspect]
     Active Substance: PYRIDOXINE
     Indication: ATYPICAL MYCOBACTERIAL INFECTION
  3. RAMIPRIL (RAMIPRIL) (RAMIPRIL) [Suspect]
     Active Substance: RAMIPRIL
  4. ATORVASTATIN (ATORVASTATIN) (ATORVASTATIN) [Suspect]
     Active Substance: ATORVASTATIN
  5. ALBUTEROL (ALBUTEROL) (ALBUTEROL) [Suspect]
     Active Substance: ALBUTEROL
  6. FORMOTEROL [Suspect]
     Active Substance: FORMOTEROL
  7. METOPROLOL TARTRATE (METOPROLOL TARTRATE) (METOPROLOL TARTRATE) [Suspect]
     Active Substance: METOPROLOL TARTRATE
  8. BUDESONIDE. [Suspect]
     Active Substance: BUDESONIDE
  9. HYDROCHLOROTHIAZIDE (HYDROCHLOROTHIAZIDE) (HYDROCHLOROTHIAZIDE) [Suspect]
     Active Substance: HYDROCHLOROTHIAZIDE
  10. ETHAMBUTOL [Concomitant]
     Active Substance: ETHAMBUTOL HYDROCHLORIDE
     Indication: ATYPICAL MYCOBACTERIAL INFECTION
  11. ASPIRIN (ASPIRIN) (ASPIRIN) [Suspect]
     Active Substance: ASPIRIN
  12. TIOTROPIUM BROMIDE [Suspect]
     Active Substance: TIOTROPIUM BROMIDE
  13. ISONIAZID (ISONIAZID) (ISONIAZID) [Suspect]
     Active Substance: ISONIAZID
     Indication: ATYPICAL MYCOBACTERIAL INFECTION
  14. RIFAMPIN (RIFAMPIN) (RIFAMPIN) [Suspect]
     Active Substance: RIFAMPIN
     Indication: ATYPICAL MYCOBACTERIAL INFECTION
  15. AZITHROMYCIN [Suspect]
     Active Substance: AZITHROMYCIN ANHYDROUS
     Indication: ATYPICAL MYCOBACTERIAL INFECTION

REACTIONS (2)
  - Hemianopia heteronymous [None]
  - Chromatopsia [None]
